FAERS Safety Report 6250205-2 (Version None)
Quarter: 2009Q2

REPORT INFORMATION
  Report Type: 
  Country: None (occurrence: None)
  Receive Date: 20090626
  Receipt Date: 20090610
  Transmission Date: 20091009
  Serious: Yes (Hospitalization)
  Sender: FDA-Public Use
  Company Number: 8029635

PATIENT
  Age: 65 Year
  Sex: Female
  Weight: 61.8 kg

DRUGS (6)
  1. CDP870 [Suspect]
     Indication: RHEUMATOID ARTHRITIS
     Dosage: 200 MG 1/2W SC
     Route: 058
     Dates: start: 20050711, end: 20060626
  2. CDP870 [Suspect]
     Indication: RHEUMATOID ARTHRITIS
     Dosage: 400 MG 1/2W SC
     Route: 058
     Dates: start: 20060710, end: 20080119
  3. CDP870 [Suspect]
     Indication: RHEUMATOID ARTHRITIS
     Dosage: 400 MG 1/2W SC
     Route: 058
     Dates: start: 20080206
  4. METHOTREXATE [Concomitant]
  5. ACID FOLIC [Concomitant]
  6. DICLOFENAC SODIUM [Concomitant]

REACTIONS (6)
  - BLISTER [None]
  - BODY TEMPERATURE INCREASED [None]
  - DRUG INEFFECTIVE [None]
  - EAR INFECTION [None]
  - EAR PAIN [None]
  - OTITIS MEDIA [None]
